FAERS Safety Report 12738552 (Version 4)
Quarter: 2018Q2

REPORT INFORMATION
  Report Type: Spontaneous
  Country: US (occurrence: US)
  Receive Date: 20160912
  Receipt Date: 20180515
  Transmission Date: 20180711
  Serious: No
  Sender: FDA-Public Use
  Company Number: US-SA-2016SA139958

PATIENT
  Age: 83 Year
  Sex: Male
  Weight: 97.5 kg

DRUGS (12)
  1. HUMALOG [Suspect]
     Active Substance: INSULIN LISPRO
     Indication: TYPE 1 DIABETES MELLITUS
     Dosage: 15-20 UNITS
     Route: 065
  2. SOLOSTAR [Concomitant]
     Active Substance: DEVICE
  3. HUMALOG [Suspect]
     Active Substance: INSULIN LISPRO
     Indication: TYPE 1 DIABETES MELLITUS
     Dosage: 15-20 UNITS DOSE:25 UNIT(S)
     Route: 065
     Dates: start: 20160727, end: 20160727
  4. SOLOSTAR [Concomitant]
     Active Substance: DEVICE
     Dates: start: 20160715
  5. TOUJEO [Suspect]
     Active Substance: INSULIN GLARGINE
     Indication: TYPE 1 DIABETES MELLITUS
     Dosage: DOSE:45 UNIT(S)
     Route: 051
     Dates: start: 2015
  6. SOLOSTAR [Concomitant]
     Active Substance: DEVICE
  7. HUMALOG [Suspect]
     Active Substance: INSULIN LISPRO
     Indication: TYPE 1 DIABETES MELLITUS
     Dosage: 10 UNITS IN MORMING 25 UNITS AT NOON AND AT NIGHT
     Route: 065
  8. SOLOSTAR [Concomitant]
     Active Substance: DEVICE
     Dates: start: 2015
  9. TOUJEO [Suspect]
     Active Substance: INSULIN GLARGINE
     Indication: TYPE 1 DIABETES MELLITUS
     Dosage: DOSE:50 UNIT(S)
     Route: 051
     Dates: start: 20160715
  10. TOUJEO [Suspect]
     Active Substance: INSULIN GLARGINE
     Indication: TYPE 1 DIABETES MELLITUS
     Dosage: DOSE:35 UNIT(S)
     Route: 051
  11. TOUJEO [Suspect]
     Active Substance: INSULIN GLARGINE
     Indication: TYPE 1 DIABETES MELLITUS
     Dosage: DOSE:44 UNIT(S)
     Route: 051
  12. LANTUS [Concomitant]
     Active Substance: INSULIN GLARGINE
     Route: 065

REACTIONS (4)
  - Blood glucose increased [Recovered/Resolved]
  - Drug ineffective [Unknown]
  - Product use issue [Unknown]
  - Blood glucose decreased [Unknown]

NARRATIVE: CASE EVENT DATE: 20160728
